FAERS Safety Report 7756428-5 (Version None)
Quarter: 2011Q3

REPORT INFORMATION
  Report Type: 
  Country: None (occurrence: None)
  Receive Date: 20110916
  Receipt Date: 20110907
  Transmission Date: 20111222
  Serious: Yes (Life-Threatening, Hospitalization)
  Sender: FDA-Public Use
  Company Number: GR-B.I. PHARMACEUTICALS,INC./RIDGEFIELD-2011-DE-05035GD

PATIENT
  Age: 54 Year
  Sex: Male

DRUGS (4)
  1. ENTACAPONE [Suspect]
     Indication: PARKINSON'S DISEASE
     Dosage: 1200 MG
  2. PRAMIPEXOLE DIHYCHLLORIDE [Suspect]
     Indication: PARKINSON'S DISEASE
     Dosage: 0.54 MG
  3. CARBIDOPA [Suspect]
     Indication: PARKINSON'S DISEASE
     Dosage: 125 MG
  4. LEVODOPA [Suspect]
     Indication: PARKINSON'S DISEASE
     Dosage: 600 MG

REACTIONS (1)
  - NEUROLEPTIC MALIGNANT SYNDROME [None]
